FAERS Safety Report 17316167 (Version 2)
Quarter: 2020Q1

REPORT INFORMATION
  Report Type: Spontaneous
  Country: BR (occurrence: BR)
  Receive Date: 20200124
  Receipt Date: 20200311
  Transmission Date: 20200409
  Serious: Yes (Hospitalization, Other)
  Sender: FDA-Public Use
  Company Number: BR-PFIZER INC-2020027611

PATIENT
  Age: 68 Year
  Sex: Female
  Weight: 48 kg

DRUGS (6)
  1. ALDACTONE [Suspect]
     Active Substance: SPIRONOLACTONE
     Indication: ASCITES
     Dosage: 50MG TWICE A DAY
     Dates: start: 201909, end: 201910
  2. HALDOL [Concomitant]
     Active Substance: HALOPERIDOL
     Dosage: 1 MG, UNK
     Dates: start: 201909
  3. XARELTO [Concomitant]
     Active Substance: RIVAROXABAN
     Dosage: 20 MG, UNK
     Dates: start: 201909
  4. DOMPERIDONE [Concomitant]
     Active Substance: DOMPERIDONE
     Dosage: 10 MG, UNK
     Dates: start: 201909
  5. ALDACTONE [Suspect]
     Active Substance: SPIRONOLACTONE
     Dosage: 100MG ONCE PER DAY
     Dates: start: 202001, end: 20200120
  6. LASIX [Concomitant]
     Active Substance: FUROSEMIDE
     Dosage: 40 MG, DAILY
     Dates: start: 201909

REACTIONS (5)
  - Anaemia [Not Recovered/Not Resolved]
  - Drug ineffective [Recovered/Resolved]
  - Oesophageal stenosis [Unknown]
  - Dysphagia [Unknown]
  - Varices oesophageal [Recovered/Resolved]

NARRATIVE: CASE EVENT DATE: 201909
